FAERS Safety Report 16194478 (Version 1)
Quarter: 2019Q2

REPORT INFORMATION
  Report Type: Spontaneous
  Country: DE (occurrence: DE)
  Receive Date: 20190414
  Receipt Date: 20190414
  Transmission Date: 20190711
  Serious: Yes (Other)
  Sender: FDA-Public Use
  Company Number: DE-BIOGEN-2019BI00723061

PATIENT
  Age: 20 Year
  Sex: Male

DRUGS (1)
  1. TECFIDERA [Suspect]
     Active Substance: DIMETHYL FUMARATE
     Indication: MULTIPLE SCLEROSIS
     Dosage: MAINTENANCE DOSE
     Route: 048
     Dates: start: 201803, end: 2018

REACTIONS (2)
  - Multiple sclerosis relapse [Recovered/Resolved]
  - Myelitis [Not Recovered/Not Resolved]

NARRATIVE: CASE EVENT DATE: 201810
